FAERS Safety Report 4936635-7 (Version None)
Quarter: 2006Q1

REPORT INFORMATION
  Report Type: 
  Country: None (occurrence: None)
  Receive Date: 20060307
  Receipt Date: 20050930
  Transmission Date: 20060701
  Serious: Yes (Hospitalization)
  Sender: FDA-Public Use
  Company Number: PR-MERCK-0510USA01613

PATIENT
  Age: 59 Year
  Sex: Female
  Weight: 61 kg

DRUGS (1)
  1. VIOXX [Suspect]
     Indication: ARTHRALGIA
     Route: 048
     Dates: start: 20000801, end: 20010224

REACTIONS (4)
  - CARDIOVASCULAR DISORDER [None]
  - HYPERLIPIDAEMIA [None]
  - INJURY [None]
  - MYOCARDIAL INFARCTION [None]
